FAERS Safety Report 7539972-5 (Version None)
Quarter: 2011Q2

REPORT INFORMATION
  Report Type: 
  Country: None (occurrence: None)
  Receive Date: 20110610
  Receipt Date: 20110531
  Transmission Date: 20111010
  Serious: Yes (Death, Life-Threatening, Other)
  Sender: FDA-Public Use
  Company Number: DK-JNJFOC-20101005011

PATIENT
  Sex: Male

DRUGS (6)
  1. METHOTREXATE [Concomitant]
     Indication: RHEUMATOID ARTHRITIS
     Route: 048
     Dates: start: 20031118, end: 20100610
  2. REMICADE [Suspect]
     Indication: RHEUMATOID ARTHRITIS
     Route: 042
     Dates: end: 20100927
  3. REMICADE [Suspect]
     Route: 042
     Dates: start: 20100101
  4. REMICADE [Suspect]
     Dosage: WEEK 0,2,6
     Route: 042
     Dates: start: 20080326
  5. PREDNISOLONE [Concomitant]
     Indication: RHEUMATOID ARTHRITIS
     Dates: start: 19950101
  6. SULFASALAZINE [Concomitant]
     Indication: RHEUMATOID ARTHRITIS
     Dates: start: 19950101

REACTIONS (2)
  - PROSTATE CANCER [None]
  - LUNG NEOPLASM MALIGNANT [None]
